FAERS Safety Report 7945710-4 (Version None)
Quarter: 2011Q4

REPORT INFORMATION
  Report Type: 
  Country: None (occurrence: None)
  Receive Date: 20111122
  Receipt Date: 20111110
  Transmission Date: 20120403
  Serious: Yes (Hospitalization)
  Sender: FDA-Public Use
  Company Number: DSA_46801_2011

PATIENT
  Sex: Female

DRUGS (5)
  1. WELLBUTRIN XL [Suspect]
     Indication: DEPRESSION
     Dosage: (20-40 TABLETS, NOT THE PRESCRIBED AMOUNT ORAL) ; (DF ORAL)
     Route: 048
     Dates: start: 20091009, end: 20091009
  2. WELLBUTRIN XL [Suspect]
     Indication: DEPRESSION
     Dosage: (20-40 TABLETS, NOT THE PRESCRIBED AMOUNT ORAL) ; (DF ORAL)
     Route: 048
     Dates: start: 20080901
  3. GUAIFENESIN [Concomitant]
  4. DIAZEPAM [Concomitant]
  5. ACETAMINOPHEN [Concomitant]

REACTIONS (8)
  - PAIN [None]
  - SUICIDE ATTEMPT [None]
  - CONVULSION [None]
  - EMOTIONAL DISTRESS [None]
  - PUPILLARY REFLEX IMPAIRED [None]
  - SINUS TACHYCARDIA [None]
  - DYSARTHRIA [None]
  - ANXIETY [None]
